FAERS Safety Report 5726731-9 (Version None)
Quarter: 2008Q2

REPORT INFORMATION
  Report Type: 
  Country: None (occurrence: None)
  Receive Date: 20080502
  Receipt Date: 20080424
  Transmission Date: 20081010
  Serious: Yes (Hospitalization)
  Sender: FDA-Public Use
  Company Number: US-PFIZER INC-2008019132

PATIENT
  Sex: Male
  Weight: 113.63 kg

DRUGS (1)
  1. VIAGRA [Suspect]
     Indication: ERECTILE DYSFUNCTION
     Dates: start: 20060428, end: 20060530

REACTIONS (7)
  - COMA [None]
  - DRUG INEFFECTIVE [None]
  - DRUG TOXICITY [None]
  - MENTAL STATUS CHANGES [None]
  - PANCREATITIS ACUTE [None]
  - RENAL FAILURE [None]
  - RESPIRATORY DISORDER [None]
